FAERS Safety Report 8005323-5 (Version None)
Quarter: 2011Q4

REPORT INFORMATION
  Report Type: 
  Country: None (occurrence: None)
  Receive Date: 20111223
  Receipt Date: 20111212
  Transmission Date: 20120403
  Serious: Yes (Other)
  Sender: FDA-Public Use
  Company Number: US-ELI_LILLY_AND_COMPANY-US201112003466

PATIENT
  Sex: Female
  Weight: 76.417 kg

DRUGS (10)
  1. CRESTOR [Concomitant]
     Indication: BLOOD CHOLESTEROL
     Dosage: 5 MG, QD
     Route: 048
  2. COZAAR [Concomitant]
     Indication: BLOOD PRESSURE
     Dosage: 50 MG, BID
     Route: 048
  3. CELEBREX [Concomitant]
     Indication: ARTHRITIS
     Dosage: 1000 MG, QD
     Route: 048
  4. ASPIRIN [Concomitant]
     Dosage: 81 MG, QD
  5. TOPROL-XL [Concomitant]
     Indication: BLOOD PRESSURE INCREASED
     Dosage: 25 MG, BID
     Route: 048
  6. NEXIUM [Concomitant]
     Indication: GASTROOESOPHAGEAL REFLUX DISEASE
     Dosage: 40 MG, QD
     Route: 048
  7. MAXZIDE [Concomitant]
     Indication: BLOOD PRESSURE
     Dosage: 25 MG, QD
     Route: 048
  8. SINGULAIR [Concomitant]
     Indication: HYPERSENSITIVITY
     Dosage: 10 MG, QD
  9. BYETTA [Suspect]
     Indication: GLUCOSE TOLERANCE IMPAIRED
     Dosage: 5 UG, BID
     Route: 058
     Dates: start: 20070101
  10. PREMARIN [Concomitant]
     Indication: HOT FLUSH
     Dosage: UNK, QOD
     Route: 048

REACTIONS (7)
  - AORTIC VALVE DISEASE [None]
  - BLOOD PRESSURE ABNORMAL [None]
  - OFF LABEL USE [None]
  - LUNG NEOPLASM MALIGNANT [None]
  - ATRIAL FIBRILLATION [None]
  - TACHYCARDIA [None]
  - ATRIAL FLUTTER [None]
